FAERS Safety Report 15681488 (Version 1)
Quarter: 2018Q4

REPORT INFORMATION
  Report Type: Spontaneous
  Country: FR (occurrence: FR)
  Receive Date: 20181203
  Receipt Date: 20181203
  Transmission Date: 20190205
  Serious: Yes (Hospitalization)
  Sender: FDA-Public Use
  Company Number: FR-SA-2016SA054997

PATIENT
  Age: 76 Year
  Sex: Male

DRUGS (6)
  1. ORBENINE [Concomitant]
     Active Substance: CLOXACILLIN SODIUM
     Indication: INTERVERTEBRAL DISCITIS
     Dosage: 12 G,QD
     Dates: start: 20151017, end: 20151030
  2. RIFADINE [Suspect]
     Active Substance: RIFAMPIN
     Indication: INTERVERTEBRAL DISCITIS
     Dosage: 900 MG,QD
     Route: 048
     Dates: start: 20151030
  3. CLINDAMYCIN HYDROCHLORIDE. [Interacting]
     Active Substance: CLINDAMYCIN HYDROCHLORIDE
     Indication: STAPHYLOCOCCAL INFECTION
     Dosage: 600 MG,QID
     Route: 048
     Dates: start: 20151030
  4. ORBENINE [Concomitant]
     Active Substance: CLOXACILLIN SODIUM
     Indication: STAPHYLOCOCCAL INFECTION
  5. RIFADINE [Interacting]
     Active Substance: RIFAMPIN
     Indication: STAPHYLOCOCCAL INFECTION
  6. CLINDAMYCIN HYDROCHLORIDE. [Interacting]
     Active Substance: CLINDAMYCIN HYDROCHLORIDE
     Indication: INTERVERTEBRAL DISCITIS
     Dosage: 900 MG,QID
     Route: 048
     Dates: start: 20151120

REACTIONS (2)
  - Drug level below therapeutic [Unknown]
  - Drug interaction [Unknown]

NARRATIVE: CASE EVENT DATE: 20151120
